FAERS Safety Report 19614052 (Version 1)
Quarter: 2021Q3

REPORT INFORMATION
  Report Type: Spontaneous
  Country: FI (occurrence: FI)
  Receive Date: 20210727
  Receipt Date: 20210727
  Transmission Date: 20211014
  Serious: Yes (Congenital Anomaly)
  Sender: FDA-Public Use
  Company Number: FI-TEVA-2021-FI-1935114

PATIENT
  Age: 0 Year
  Sex: Male

DRUGS (1)
  1. VENLAFAXINE [Suspect]
     Active Substance: VENLAFAXINE HYDROCHLORIDE
     Indication: MENTAL DISORDER
     Dosage: 225 MILLIGRAM DAILY;
     Route: 065

REACTIONS (6)
  - Speech disorder developmental [Recovered/Resolved with Sequelae]
  - Foetal hypokinesia [Recovered/Resolved with Sequelae]
  - Drug withdrawal syndrome neonatal [Recovered/Resolved with Sequelae]
  - Fatigue [Recovered/Resolved with Sequelae]
  - Maternal exposure during pregnancy [Recovered/Resolved with Sequelae]
  - Muscle twitching [Recovered/Resolved with Sequelae]
